FAERS Safety Report 20821098 (Version 2)
Quarter: 2022Q3

REPORT INFORMATION
  Report Type: Spontaneous
  Country: US (occurrence: US)
  Receive Date: 20220512
  Receipt Date: 20220817
  Transmission Date: 20221026
  Serious: No
  Sender: FDA-Public Use
  Company Number: US-PFIZER INC-202200677278

PATIENT
  Age: 73 Year
  Sex: Female
  Weight: 56.25 kg

DRUGS (3)
  1. PAXLOVID [Suspect]
     Active Substance: NIRMATRELVIR\RITONAVIR
     Indication: COVID-19 treatment
     Dosage: UNK, 2X/DAY (5 DAY SUPPLY)
     Dates: start: 20220504
  2. SIMPONI ARIA [Concomitant]
     Active Substance: GOLIMUMAB
     Indication: Ankylosing spondylitis
     Dosage: INFUSION EVERY 8 WEEKS
     Dates: end: 20220425
  3. SULINDAC [Concomitant]
     Active Substance: SULINDAC
     Dosage: 150 MG, DAILY

REACTIONS (2)
  - Diarrhoea [Unknown]
  - Dysgeusia [Not Recovered/Not Resolved]

NARRATIVE: CASE EVENT DATE: 20220504
